FAERS Safety Report 23075143 (Version 3)
Quarter: 2023Q4

REPORT INFORMATION
  Report Type: Report from Study
  Country: BG (occurrence: BG)
  Receive Date: 20231017
  Receipt Date: 20231124
  Transmission Date: 20240109
  Serious: Yes (Death, Other)
  Sender: FDA-Public Use
  Company Number: BG-BoehringerIngelheim-2023-BI-267315

PATIENT

DRUGS (2)
  1. SYNJARDY [Suspect]
     Active Substance: EMPAGLIFLOZIN\METFORMIN HYDROCHLORIDE
     Indication: Type 2 diabetes mellitus
     Dosage: 5MG/1000  MG(METFORMIN  1000  MG  AND  EMPAGLIPHLOZIN  5  MG)
  2. METFORMIN [Concomitant]
     Active Substance: METFORMIN HYDROCHLORIDE
     Indication: Type 2 diabetes mellitus

REACTIONS (3)
  - End stage renal disease [Fatal]
  - Cerebrovascular accident [Fatal]
  - Drug ineffective [Not Recovered/Not Resolved]
